FAERS Safety Report 10168711 (Version 1)
Quarter: 2014Q2

REPORT INFORMATION
  Report Type: Report from Study
  Country: US (occurrence: US)
  Receive Date: 20140513
  Receipt Date: 20140513
  Transmission Date: 20141212
  Serious: Yes (Hospitalization, Other)
  Sender: FDA-Public Use
  Company Number: US-ROCHE-1399106

PATIENT
  Age: 62 Year
  Sex: Female
  Weight: 83.99 kg

DRUGS (5)
  1. HERCEPTIN [Suspect]
     Indication: BREAST CANCER
     Route: 042
     Dates: start: 201312
  2. HERCEPTIN [Suspect]
     Route: 042
     Dates: start: 20140501
  3. CARBOPLATIN [Concomitant]
  4. TAXOTERE [Concomitant]
  5. ABRAXANE [Concomitant]

REACTIONS (6)
  - Protein urine present [Unknown]
  - Full blood count decreased [Recovering/Resolving]
  - Cystitis [Recovering/Resolving]
  - Neuropathy peripheral [Not Recovered/Not Resolved]
  - Fatigue [Not Recovered/Not Resolved]
  - Nausea [Recovered/Resolved]
